FAERS Safety Report 18043716 (Version 1)
Quarter: 2020Q3

REPORT INFORMATION
  Report Type: Spontaneous
  Country: US (occurrence: US)
  Receive Date: 20200718
  Receipt Date: 20200718
  Transmission Date: 20201103
  Serious: No
  Sender: FDA-Public Use
  Company Number: None

PATIENT
  Age: 41 Year
  Sex: Male
  Weight: 105.75 kg

DRUGS (2)
  1. ASSURED INSTANT HAND SANITIZER VITAMIN E AND ALOE [Suspect]
     Active Substance: ALCOHOL
     Indication: INFECTION PROPHYLAXIS
     Dosage: ?          QUANTITY:59.2 DROP(S);?
     Route: 061
  2. ASSURED INSTANT HAND SANITIZER VITAMIN E AND ALOE [Suspect]
     Active Substance: ALCOHOL
     Indication: COVID-19
     Dosage: ?          QUANTITY:59.2 DROP(S);?
     Route: 061

REACTIONS (3)
  - Application site dryness [None]
  - Chemical burn of skin [None]
  - Application site burn [None]

NARRATIVE: CASE EVENT DATE: 20200401
